FAERS Safety Report 15822938 (Version 1)
Quarter: 2019Q1

REPORT INFORMATION
  Report Type: Report from Study
  Country: US (occurrence: US)
  Receive Date: 20190114
  Receipt Date: 20190114
  Transmission Date: 20190417
  Serious: Yes (Hospitalization, Other)
  Sender: FDA-Public Use
  Company Number: US-SA-2019SA008832

PATIENT
  Age: 62 Year
  Sex: Female

DRUGS (1)
  1. INSULIN GLARGINE/LIXISENATIDE [Suspect]
     Active Substance: INSULIN GLARGINE\LIXISENATIDE
     Indication: DIABETES MELLITUS
     Dosage: 38 U, QD
     Route: 058
     Dates: start: 2018, end: 20190108

REACTIONS (10)
  - Glycosylated haemoglobin decreased [Not Recovered/Not Resolved]
  - Expired product administered [Unknown]
  - Ejection fraction decreased [Recovered/Resolved]
  - Abdominal discomfort [Recovered/Resolved]
  - Abdominal pain upper [Recovered/Resolved]
  - Heart rate decreased [Recovered/Resolved]
  - Hypersensitivity [Recovering/Resolving]
  - Weight increased [Not Recovered/Not Resolved]
  - Urticaria [Recovering/Resolving]
  - Abdominal distension [Not Recovered/Not Resolved]
